FAERS Safety Report 22400584 (Version 1)
Quarter: 2023Q2

REPORT INFORMATION
  Report Type: Spontaneous
  Country: CZ (occurrence: CZ)
  Receive Date: 20230602
  Receipt Date: 20230602
  Transmission Date: 20230722
  Serious: Yes (Other)
  Sender: FDA-Public Use
  Company Number: CZ-PFM-2023-03092

PATIENT
  Sex: Male
  Weight: 32 kg

DRUGS (3)
  1. BUSULFAN [Suspect]
     Active Substance: BUSULFAN
     Indication: Metachromatic leukodystrophy
     Dosage: UNK
     Route: 042
     Dates: start: 20230507, end: 20230509
  2. BUSULFAN [Suspect]
     Active Substance: BUSULFAN
     Indication: Off label use
  3. ZOFRAN [Concomitant]
     Active Substance: ONDANSETRON HYDROCHLORIDE
     Indication: Nausea
     Dosage: 2 MG/ML
     Route: 065

REACTIONS (3)
  - Erythema [Recovered/Resolved]
  - Product use in unapproved indication [Unknown]
  - Off label use [Unknown]

NARRATIVE: CASE EVENT DATE: 20230509
